FAERS Safety Report 7653357-2 (Version None)
Quarter: 2011Q3

REPORT INFORMATION
  Report Type: 
  Country: None (occurrence: None)
  Receive Date: 20110803
  Receipt Date: 20110801
  Transmission Date: 20111222
  Serious: Yes (Other)
  Sender: FDA-Public Use
  Company Number: AU-PFIZER INC-2011174071

PATIENT
  Sex: Male

DRUGS (1)
  1. LIPITOR [Suspect]
     Dosage: 40 MG, UNK

REACTIONS (5)
  - HIP ARTHROPLASTY [None]
  - JOINT STIFFNESS [None]
  - MYALGIA [None]
  - RENAL TRANSPLANT [None]
  - INTRACRANIAL ANEURYSM [None]
